FAERS Safety Report 22383399 (Version 2)
Quarter: 2023Q2

REPORT INFORMATION
  Report Type: Report from Study
  Country: CO (occurrence: CO)
  Receive Date: 20230530
  Receipt Date: 20230531
  Transmission Date: 20230722
  Serious: Yes (Hospitalization)
  Sender: FDA-Public Use
  Company Number: CO-JNJFOC-20230239875

PATIENT
  Age: 62 Year
  Sex: Female
  Weight: 105 kg

DRUGS (11)
  1. RISPERDAL CONSTA [Suspect]
     Active Substance: RISPERIDONE
     Indication: Bipolar disorder
     Dosage: LAST APPLICATION DATE: 06-JAN-2023
     Route: 030
     Dates: start: 202203
  2. RISPERDAL CONSTA [Suspect]
     Active Substance: RISPERIDONE
  3. RISPERDAL CONSTA [Suspect]
     Active Substance: RISPERIDONE
  4. RISPERDAL CONSTA [Suspect]
     Active Substance: RISPERIDONE
  5. LITHIUM CARBONATE [Concomitant]
     Active Substance: LITHIUM CARBONATE
  6. QUETIAPINE [Concomitant]
     Active Substance: QUETIAPINE
  7. OMEPRAZOLE [Concomitant]
     Active Substance: OMEPRAZOLE
  8. ASPIRIN [Concomitant]
     Active Substance: ASPIRIN
  9. ATORVASTATIN [Concomitant]
     Active Substance: ATORVASTATIN
  10. CARVEDILOL [Concomitant]
     Active Substance: CARVEDILOL
  11. ENALAPRIL [Concomitant]
     Active Substance: ENALAPRIL

REACTIONS (3)
  - Cardiac arrest [Unknown]
  - Myocardial infarction [Recovering/Resolving]
  - Bipolar disorder [Recovering/Resolving]

NARRATIVE: CASE EVENT DATE: 20221231
